FAERS Safety Report 7359680-3 (Version None)
Quarter: 2011Q1

REPORT INFORMATION
  Report Type: 
  Country: None (occurrence: None)
  Receive Date: 20110317
  Receipt Date: 20100720
  Transmission Date: 20110831
  Serious: Yes (Other)
  Sender: FDA-Public Use
  Company Number: US-PFIZER INC-2010091434

PATIENT
  Sex: Male

DRUGS (3)
  1. NORVASC [Suspect]
     Dosage: UNK
  2. LIPITOR [Concomitant]
     Dosage: UNK
  3. FLOMAX [Concomitant]
     Dosage: UNK

REACTIONS (2)
  - PULMONARY OEDEMA [None]
  - FLUID RETENTION [None]
